FAERS Safety Report 16320312 (Version 6)
Quarter: 2019Q3

REPORT INFORMATION
  Report Type: Spontaneous
  Country: US (occurrence: US)
  Receive Date: 20190516
  Receipt Date: 20190830
  Transmission Date: 20191004
  Serious: No
  Sender: FDA-Public Use
  Company Number: US-PFIZER INC-2019208005

PATIENT
  Age: 72 Year
  Sex: Female
  Weight: 88.44 kg

DRUGS (2)
  1. XELJANZ XR [Suspect]
     Active Substance: TOFACITINIB CITRATE
     Indication: RHEUMATOID ARTHRITIS
     Dosage: 11 MG, DAILY
     Route: 048
     Dates: start: 20190418
  2. XELJANZ XR [Suspect]
     Active Substance: TOFACITINIB CITRATE
     Dosage: 11 MG, DAILY
     Route: 048
     Dates: start: 20190418

REACTIONS (5)
  - Sinusitis [Unknown]
  - Urinary tract infection [Unknown]
  - Back disorder [Unknown]
  - Peripheral swelling [Unknown]
  - Sciatica [Unknown]
